FAERS Safety Report 5649117-4 (Version None)
Quarter: 2008Q1

REPORT INFORMATION
  Report Type: 
  Country: None (occurrence: None)
  Receive Date: 20080131
  Receipt Date: 20071008
  Transmission Date: 20080703
  Serious: No
  Sender: FDA-Public Use
  Company Number: US200708006087

PATIENT
  Age: 68 Year
  Sex: Female
  Weight: 115.6 kg

DRUGS (4)
  1. BYETTA [Suspect]
     Indication: TYPE 2 DIABETES MELLITUS
     Dosage: 5 UG, 2/D, SUBCUTANEOUS ; 10 UG, 2/D, SUBCUTANEOUS
     Route: 058
     Dates: start: 20070629, end: 20070729
  2. BYETTA [Suspect]
     Indication: TYPE 2 DIABETES MELLITUS
     Dosage: 5 UG, 2/D, SUBCUTANEOUS ; 10 UG, 2/D, SUBCUTANEOUS
     Route: 058
     Dates: start: 20070730
  3. GLUCOPHAGE [Concomitant]
  4. PRECOSE [Concomitant]

REACTIONS (6)
  - BACK PAIN [None]
  - CHEST PAIN [None]
  - DYSGEUSIA [None]
  - FEELING JITTERY [None]
  - GALLBLADDER PAIN [None]
  - NAUSEA [None]
